FAERS Safety Report 15731093 (Version 1)
Quarter: 2018Q4

REPORT INFORMATION
  Report Type: Spontaneous
  Country: US (occurrence: US)
  Receive Date: 20181217
  Receipt Date: 20181217
  Transmission Date: 20190205
  Serious: Yes (Hospitalization)
  Sender: FDA-Public Use
  Company Number: None

PATIENT
  Age: 50 Year
  Sex: Female

DRUGS (14)
  1. VITAMIN B12 [Concomitant]
     Active Substance: CYANOCOBALAMIN
     Dates: start: 20180524
  2. VITAMIN D3 [Concomitant]
     Active Substance: CHOLECALCIFEROL
     Dates: start: 20180524
  3. MULTIVITAMIN [Concomitant]
     Active Substance: VITAMINS
     Dates: start: 20180524
  4. DALFAMPRIDINE. [Suspect]
     Active Substance: DALFAMPRIDINE
     Indication: MULTIPLE SCLEROSIS
     Route: 048
     Dates: start: 20181019
  5. BACLOFEN. [Concomitant]
     Active Substance: BACLOFEN
     Dates: start: 20180524
  6. VYVANSE [Concomitant]
     Active Substance: LISDEXAMFETAMINE DIMESYLATE
     Dates: start: 20181214
  7. CELEBREX [Concomitant]
     Active Substance: CELECOXIB
     Dates: start: 20181214
  8. DESVENLAFAX [Concomitant]
     Dates: start: 20181214
  9. BIOTIN [Concomitant]
     Active Substance: BIOTIN
     Dates: start: 20180524
  10. CALCIUM [Concomitant]
     Active Substance: CALCIUM
     Dates: start: 20180524
  11. RESTASIS [Concomitant]
     Active Substance: CYCLOSPORINE
     Dates: start: 20180524
  12. TRIAMTERENE. [Concomitant]
     Active Substance: TRIAMTERENE
     Dates: start: 20181214
  13. PROGESTERONE. [Concomitant]
     Active Substance: PROGESTERONE
     Dates: start: 20181214
  14. VITAMIN C [Concomitant]
     Active Substance: ASCORBIC ACID
     Dates: start: 20180524

REACTIONS (6)
  - Fall [None]
  - Mobility decreased [None]
  - Loss of personal independence in daily activities [None]
  - Balance disorder [None]
  - Depression [None]
  - Fatigue [None]

NARRATIVE: CASE EVENT DATE: 20180503
